FAERS Safety Report 10216986 (Version 3)
Quarter: 2014Q2

REPORT INFORMATION
  Report Type: Spontaneous
  Country: JP (occurrence: JP)
  Receive Date: 20140604
  Receipt Date: 20140625
  Transmission Date: 20141212
  Serious: Yes (Death, Hospitalization)
  Sender: FDA-Public Use
  Company Number: JP-BAXTER-2014BAX026989

PATIENT
  Sex: Female

DRUGS (1)
  1. DIANEAL-N PD-4 1.5 PD SOLUTION [Suspect]
     Indication: RENAL FAILURE CHRONIC
     Route: 033
     Dates: end: 20140517

REACTIONS (3)
  - Cardiac failure [Fatal]
  - Angina pectoris [Unknown]
  - Back pain [Unknown]
